FAERS Safety Report 19893453 (Version 1)
Quarter: 2021Q3

REPORT INFORMATION
  Report Type: Report from Study
  Country: GB (occurrence: GB)
  Receive Date: 20210928
  Receipt Date: 20210928
  Transmission Date: 20211014
  Serious: Yes (Hospitalization)
  Sender: FDA-Public Use
  Company Number: GB-SA-2017SA146427

PATIENT
  Age: 67 Year
  Sex: Male
  Weight: 99.6 kg

DRUGS (17)
  1. CABAZITAXEL [Suspect]
     Active Substance: CABAZITAXEL
     Dosage: 25 MG/M2, Q3W
     Route: 042
     Dates: start: 20170413, end: 20170413
  2. PARACETAMOL [Concomitant]
     Active Substance: ACETAMINOPHEN
     Dosage: 400 MG, QD
     Route: 048
     Dates: start: 20170706
  3. ZOLADEX [Concomitant]
     Active Substance: GOSERELIN ACETATE
     Indication: PROPHYLAXIS
     Dosage: UNK UNK,UNK
     Route: 058
     Dates: start: 201310
  4. ATORVASTATIN [Concomitant]
     Active Substance: ATORVASTATIN
     Indication: HYPERCHOLESTEROLAEMIA
     Dosage: UNK UNK,UNK
     Route: 048
     Dates: start: 20170725
  5. IBUPROFEN. [Concomitant]
     Active Substance: IBUPROFEN
     Indication: INFLAMMATION
     Dosage: 400 MG,UNK
     Route: 048
     Dates: start: 20170706
  6. CO?AMOXICLAV [AMOXICILLIN SODIUM;CLAVULANATE POTASSIUM] [Concomitant]
     Active Substance: AMOXICILLIN\CLAVULANATE POTASSIUM
     Indication: DERMATITIS
     Dosage: UNK UNK, UNK
     Route: 048
     Dates: start: 20170706
  7. GLICLAZIDE [Concomitant]
     Active Substance: GLICLAZIDE
     Indication: TYPE 2 DIABETES MELLITUS
     Dosage: UNK UNK,UNK
     Route: 048
     Dates: start: 2013
  8. METFORMIN [Concomitant]
     Active Substance: METFORMIN HYDROCHLORIDE
     Indication: TYPE 2 DIABETES MELLITUS
     Dosage: UNK UNK,UNK
     Route: 048
     Dates: start: 2013
  9. FILGRASTIM [Concomitant]
     Active Substance: FILGRASTIM
     Indication: PROPHYLAXIS
     Dosage: 300 MG,UNK
     Route: 058
     Dates: start: 20170717, end: 20170722
  10. CABAZITAXEL [Suspect]
     Active Substance: CABAZITAXEL
     Indication: PROSTATE CANCER METASTATIC
     Dosage: 25 MG/M2, Q3W
     Route: 042
     Dates: start: 20170713, end: 20170713
  11. OMEPRAZOLE. [Concomitant]
     Active Substance: OMEPRAZOLE
     Indication: PROPHYLAXIS
     Dosage: UNK UNK,UNK
     Route: 048
     Dates: start: 20170706
  12. PARACETAMOL [Concomitant]
     Active Substance: ACETAMINOPHEN
     Indication: BACK PAIN
     Dosage: 500 MG,UNK
     Route: 048
     Dates: start: 201701
  13. BISOPROLOL [Concomitant]
     Active Substance: BISOPROLOL
     Indication: HYPERTENSION
     Dosage: UNK UNK,UNK
     Route: 048
     Dates: start: 201702
  14. COLCHICINE. [Concomitant]
     Active Substance: COLCHICINE
     Indication: GOUT
     Dosage: UNK UNK,UNK
     Route: 048
     Dates: start: 20170725
  15. PREDNISONE. [Suspect]
     Active Substance: PREDNISONE
     Indication: PROSTATE CANCER METASTATIC
     Dosage: 10 MG,QD
     Route: 048
     Dates: start: 20170413, end: 20170713
  16. PERINDOPRIL [Concomitant]
     Active Substance: PERINDOPRIL
     Indication: HYPERTENSION
     Dosage: UNK UNK,UNK
     Route: 048
     Dates: start: 2012
  17. ALLOPURINOL. [Concomitant]
     Active Substance: ALLOPURINOL
     Indication: GOUT
     Dosage: UNK UNK,UNK
     Route: 048
     Dates: start: 20170725

REACTIONS (1)
  - Atrial flutter [Recovered/Resolved]

NARRATIVE: CASE EVENT DATE: 20170805
